FAERS Safety Report 25820816 (Version 2)
Quarter: 2025Q4

REPORT INFORMATION
  Report Type: Spontaneous
  Country: US (occurrence: US)
  Receive Date: 20250919
  Receipt Date: 20251005
  Transmission Date: 20260117
  Serious: Yes (Hospitalization, Other)
  Sender: AUROBINDO
  Company Number: US-MLMSERVICE-20250904-PI631403-00190-1

PATIENT
  Age: 52 Year
  Sex: Female

DRUGS (2)
  1. LAMOTRIGINE [Suspect]
     Active Substance: LAMOTRIGINE
     Indication: Epilepsy
     Dosage: 300 MILLIGRAM, TWO TIMES A DAY
     Route: 065
  2. BRIVARACETAM [Concomitant]
     Active Substance: BRIVARACETAM
     Indication: Epilepsy
     Dosage: UNK
     Route: 065

REACTIONS (10)
  - Seizure [Unknown]
  - Gaze palsy [Unknown]
  - Encephalopathy [Unknown]
  - Nausea [Unknown]
  - Vomiting [Unknown]
  - Ataxia [Unknown]
  - Diplopia [Unknown]
  - Fall [Unknown]
  - Nystagmus [Unknown]
  - Toxicity to various agents [Unknown]
